FAERS Safety Report 4687434-5 (Version None)
Quarter: 2005Q2

REPORT INFORMATION
  Report Type: 
  Country: None (occurrence: None)
  Receive Date: 20050609
  Receipt Date: 20050609
  Transmission Date: 20051028
  Serious: No
  Sender: FDA-Public Use
  Company Number: None

PATIENT
  Age: 42 Year
  Sex: Male

DRUGS (17)
  1. LINEZOLID 600 MG PHARMACIA [Suspect]
     Indication: STAPHYLOCOCCAL SEPSIS
     Dosage: 600 MG Q12H INTRAVENOU
     Route: 042
     Dates: start: 20050309, end: 20050313
  2. QUETIAPINE FUMARATE [Suspect]
     Indication: DEPRESSION
     Dosage: 25 MG BID ORAL
     Route: 048
     Dates: start: 20050311, end: 20050313
  3. PYRIDOXINE HCL [Concomitant]
  4. LISINOPRIL [Concomitant]
  5. CEFTRIAXONE [Concomitant]
  6. DOXAZOSIN [Concomitant]
  7. VITAMIN B COMPLEX W/ C [Concomitant]
  8. IRON POLYSACCHARIDES [Concomitant]
  9. DILTIAZEM [Concomitant]
  10. NYSTATIN [Concomitant]
  11. PANTOPRAZOLE [Concomitant]
  12. DOCUSATE [Concomitant]
  13. LABETALOL [Concomitant]
  14. CALCIUM CAROBONATE [Concomitant]
  15. SODIUM BICARBONATE [Concomitant]
  16. INSULIN [Concomitant]
  17. ERYTHROPOEITIN [Concomitant]

REACTIONS (5)
  - BLOOD CREATININE INCREASED [None]
  - DRUG INTERACTION [None]
  - HAEMODIALYSIS [None]
  - RHABDOMYOLYSIS [None]
  - SEROTONIN SYNDROME [None]
